FAERS Safety Report 6436640-8 (Version None)
Quarter: 2009Q4

REPORT INFORMATION
  Report Type: 
  Country: None (occurrence: None)
  Receive Date: 20091110
  Receipt Date: 20091110
  Transmission Date: 20100525
  Serious: Yes (Life-Threatening)
  Sender: FDA-Public Use
  Company Number: None

PATIENT
  Age: 74 Year
  Sex: Male

DRUGS (2)
  1. MEGESTROL ACETATE [Suspect]
     Indication: BREAST CANCER
     Dosage: 20 MG BID PO
     Route: 048
     Dates: start: 20090407, end: 20090615
  2. MEGESTROL ACETATE [Suspect]
     Indication: HOT FLUSH
     Dosage: 20 MG BID PO
     Route: 048
     Dates: start: 20090407, end: 20090615

REACTIONS (1)
  - PULMONARY EMBOLISM [None]
